FAERS Safety Report 7183608-2 (Version None)
Quarter: 2010Q4

REPORT INFORMATION
  Report Type: 
  Country: None (occurrence: None)
  Receive Date: 20101220
  Receipt Date: 20101220
  Transmission Date: 20110411
  Serious: Yes (Hospitalization)
  Sender: FDA-Public Use
  Company Number: None

PATIENT
  Age: 73 Year
  Sex: Female
  Weight: 59.9 kg

DRUGS (9)
  1. TRAMADOL HCL [Suspect]
     Indication: PAIN
     Dosage: 50MG Q6HRS PRN PO  RECENT
     Route: 048
  2. TYLENOL W/ CODEINE NO. 2 [Suspect]
     Indication: PAIN
     Dosage: ONE PRN PO  RECENT
     Route: 048
  3. ALLOPURINOL [Concomitant]
  4. LEVOTHYROXINE [Concomitant]
  5. AMLODIPINE [Concomitant]
  6. HYDROCHLOROTHIAZIDE [Concomitant]
  7. SIMVASTATIN [Concomitant]
  8. PROTONIX [Concomitant]
  9. LEVOXYL [Concomitant]

REACTIONS (4)
  - CONFUSIONAL STATE [None]
  - INCORRECT DOSE ADMINISTERED [None]
  - MENTAL STATUS CHANGES [None]
  - TROPONIN INCREASED [None]
